FAERS Safety Report 17442177 (Version 2)
Quarter: 2020Q1

REPORT INFORMATION
  Report Type: Spontaneous
  Country: PL (occurrence: PL)
  Receive Date: 20200220
  Receipt Date: 20200227
  Transmission Date: 20200409
  Serious: Yes (Life-Threatening, Hospitalization, Other)
  Sender: FDA-Public Use
  Company Number: PL-MYLANLABS-2020M1019537

PATIENT
  Age: 38 Year
  Sex: Female

DRUGS (12)
  1. MEROPENEM. [Concomitant]
     Active Substance: MEROPENEM
     Dosage: 3 GRAM, QD 1 G, TID
     Route: 042
  2. COLISTIMETHATE SODIUM. [Concomitant]
     Active Substance: COLISTIMETHATE SODIUM
  3. VANCOMYCIN [Concomitant]
     Active Substance: VANCOMYCIN
     Dosage: 3 GRAM, QD 1 G, TID
     Route: 042
  4. CLINDAMYCIN. [Concomitant]
     Active Substance: CLINDAMYCIN
     Dosage: 1800 MILLIGRAM, QD 600 MG, TID
     Route: 042
  5. GENTAMICIN. [Concomitant]
     Active Substance: GENTAMICIN
     Dosage: UNK, QD
     Route: 042
  6. FLUCONAZOLE. [Concomitant]
     Active Substance: FLUCONAZOLE
     Dosage: 200 MILLIGRAM, QD
  7. PROPOFOL. [Concomitant]
     Active Substance: PROPOFOL
     Dosage: UNK
  8. FENTANYL. [Concomitant]
     Active Substance: FENTANYL
     Dosage: UNK
  9. CEFUROXIME. [Concomitant]
     Active Substance: CEFUROXIME
     Indication: ABSCESS NECK
     Dosage: UNK
     Route: 065
  10. NYSTATIN. [Concomitant]
     Active Substance: NYSTATIN
     Dosage: UNK, QD
     Route: 042
  11. CLOPIDOGREL [Suspect]
     Active Substance: CLOPIDOGREL BISULFATE
     Indication: ANTICOAGULANT THERAPY
     Dosage: UNK
     Route: 065
  12. ACETYLSALICYLIC ACID [Interacting]
     Active Substance: ASPIRIN
     Indication: ANTICOAGULANT THERAPY
     Dosage: UNK
     Route: 065

REACTIONS (16)
  - Anaemia [Recovered/Resolved]
  - Shock haemorrhagic [Recovered/Resolved]
  - Abscess neck [Recovered/Resolved]
  - Sepsis syndrome [Unknown]
  - Mobility decreased [Recovered/Resolved]
  - Syncope [Recovered/Resolved]
  - Melaena [Recovered/Resolved]
  - Asthenia [Recovered/Resolved]
  - Gastrointestinal haemorrhage [Recovered/Resolved]
  - Gastric ulcer [Recovered/Resolved]
  - Septic shock [Recovered/Resolved]
  - Cellulitis [Unknown]
  - Multiple organ dysfunction syndrome [Recovered/Resolved]
  - Acute respiratory failure [Recovered/Resolved]
  - Labelled drug-drug interaction medication error [Recovered/Resolved]
  - Haematemesis [Recovered/Resolved]
